FAERS Safety Report 7742853-5 (Version None)
Quarter: 2011Q3

REPORT INFORMATION
  Report Type: 
  Country: None (occurrence: None)
  Receive Date: 20110912
  Receipt Date: 20110831
  Transmission Date: 20111222
  Serious: Yes (Other)
  Sender: FDA-Public Use
  Company Number: US-BAYER-2011-026862

PATIENT
  Sex: Female
  Weight: 86.168 kg

DRUGS (9)
  1. IBUPROFEN [Concomitant]
     Route: 048
  2. ALBUTEROL SULFATE AUTOHALER [Concomitant]
     Dosage: UNK
     Dates: start: 20000101
  3. YAZ [Suspect]
     Indication: CONTRACEPTION
     Dosage: UNK
     Dates: start: 20080501, end: 20090201
  4. PULMICORT [Concomitant]
     Dosage: UNK
     Dates: start: 20070101
  5. PRILOSEC [Concomitant]
     Dosage: UNK
     Route: 048
     Dates: start: 20050101
  6. NEXIUM [Concomitant]
     Dosage: 40 MG, UNK
     Route: 048
     Dates: start: 20080613
  7. PRENATE [FOLIC ACID,IRON,MINERALS NOS,VITAMINS NOS] [Concomitant]
     Dosage: UNK
     Route: 048
     Dates: start: 20080605
  8. DROSPIRENONE AND ETHINYL ESTRADIOL [Suspect]
     Indication: CONTRACEPTION
     Dosage: UNK
     Dates: start: 20080101, end: 20090101
  9. ALLEGRA-D [FEXOFENADINE HYDROCHLORIDE,PSEUDOEPHEDRINE HYDROCHLORID [Concomitant]

REACTIONS (5)
  - CHOLECYSTITIS CHRONIC [None]
  - CHOLELITHIASIS [None]
  - GALLBLADDER DISORDER [None]
  - INJURY [None]
  - PAIN [None]
